FAERS Safety Report 4599583-0 (Version None)
Quarter: 2005Q1

REPORT INFORMATION
  Report Type: 
  Country: None (occurrence: None)
  Receive Date: 20050303
  Receipt Date: 20040215
  Transmission Date: 20050727
  Serious: Yes (Other)
  Sender: FDA-Public Use
  Company Number: PHEH2005US02084

PATIENT
  Age: 77 Year
  Sex: Female

DRUGS (7)
  1. VISUDYNE [Suspect]
     Indication: CHOROIDAL NEOVASCULARISATION
     Dosage: 30 ML ONCE IV
     Route: 042
     Dates: start: 20050211, end: 20050211
  2. VANCERIL [Concomitant]
  3. IPRATROPIUM BROMIDE WITH SALBUTAMOL [Concomitant]
  4. MULTI-VITAMINS [Concomitant]
  5. CRESTOR [Concomitant]
  6. HYZAAR [Concomitant]
  7. FOSAMAX [Concomitant]

REACTIONS (4)
  - DRUG HYPERSENSITIVITY [None]
  - DYSPNOEA [None]
  - NAUSEA [None]
  - RESPIRATORY DISTRESS [None]
